FAERS Safety Report 4512917-8 (Version None)
Quarter: 2004Q4

REPORT INFORMATION
  Report Type: 
  Country: None (occurrence: None)
  Receive Date: 20041123
  Receipt Date: 20041123
  Transmission Date: 20050328
  Serious: No
  Sender: FDA-Public Use
  Company Number: None

PATIENT
  Age: 45 Year
  Sex: Male
  Weight: 117.9352 kg

DRUGS (2)
  1. LORATADINE [Suspect]
     Indication: RHINITIS ALLERGIC
     Dosage: 10 MG QD
     Dates: start: 20041013, end: 20041112
  2. LORATADINE [Suspect]
     Indication: SINUSITIS
     Dosage: 10 MG QD
     Dates: start: 20041013, end: 20041112

REACTIONS (1)
  - DRUG INEFFECTIVE [None]
